FAERS Safety Report 9037897 (Version 1)
Quarter: 2013Q1

REPORT INFORMATION
  Report Type: Spontaneous
  Country: IL (occurrence: IL)
  Receive Date: 20130129
  Receipt Date: 20130129
  Transmission Date: 20140127
  Serious: Yes (Other)
  Sender: FDA-Public Use
  Company Number: IL-ELI_LILLY_AND_COMPANY-IL201301007284

PATIENT
  Age: 52 Year
  Sex: Female

DRUGS (2)
  1. ZYPREXA [Suspect]
     Indication: PSYCHOTIC DISORDER
     Dosage: 10 MG, QD
     Dates: start: 201207
  2. DEPALEPT [Concomitant]
     Indication: BIPOLAR I DISORDER
     Dosage: 1 DF, UNKNOWN

REACTIONS (3)
  - Suicidal ideation [Unknown]
  - Flat affect [Unknown]
  - Drug ineffective [Unknown]
